FAERS Safety Report 14260402 (Version 1)
Quarter: 2017Q4

REPORT INFORMATION
  Report Type: Spontaneous
  Country: US (occurrence: US)
  Receive Date: 20171207
  Receipt Date: 20171207
  Transmission Date: 20180321
  Serious: Yes (Hospitalization, Other)
  Sender: FDA-Public Use
  Company Number: US-MYLANLABS-2017M1076246

PATIENT
  Age: 21 Year
  Sex: Male

DRUGS (1)
  1. DIPHENHYDRAMINE. [Suspect]
     Active Substance: DIPHENHYDRAMINE
     Indication: PRODUCT USED FOR UNKNOWN INDICATION
     Dosage: UNK
     Route: 048

REACTIONS (20)
  - Tremor [Recovering/Resolving]
  - Staring [Unknown]
  - Reduced facial expression [Unknown]
  - Overdose [Unknown]
  - Seizure like phenomena [Unknown]
  - Dysphonia [Unknown]
  - Mental status changes [Unknown]
  - Muscle rigidity [Recovering/Resolving]
  - Hyporesponsive to stimuli [Unknown]
  - Sinus tachycardia [Recovering/Resolving]
  - Toxicity to various agents [Unknown]
  - Mydriasis [Unknown]
  - Salivary hypersecretion [Unknown]
  - Dysarthria [Unknown]
  - Drug withdrawal syndrome [Recovering/Resolving]
  - Drug abuse [Unknown]
  - Psychotic disorder [Unknown]
  - Flushing [Unknown]
  - Hyperhidrosis [Unknown]
  - Apraxia [Recovering/Resolving]
